FAERS Safety Report 12664960 (Version 1)
Quarter: 2016Q3

REPORT INFORMATION
  Report Type: Spontaneous
  Country: JP (occurrence: JP)
  Receive Date: 20160818
  Receipt Date: 20160818
  Transmission Date: 20161109
  Serious: Yes (Death)
  Sender: FDA-Public Use
  Company Number: JP-SA-2016SA149465

PATIENT
  Age: 81 Year
  Sex: Female
  Weight: 49 kg

DRUGS (4)
  1. ADALAT [Suspect]
     Active Substance: NIFEDIPINE
     Indication: BLOOD PRESSURE INCREASED
     Route: 048
     Dates: start: 20160425, end: 20160428
  2. ARGATROBAN. [Suspect]
     Active Substance: ARGATROBAN
     Indication: BRAIN STEM INFARCTION
     Route: 042
     Dates: start: 20160422, end: 20160428
  3. EDARAVONE [Suspect]
     Active Substance: EDARAVONE
     Indication: BRAIN STEM INFARCTION
     Route: 042
     Dates: start: 20160422, end: 20160505
  4. PLAVIX [Suspect]
     Active Substance: CLOPIDOGREL BISULFATE
     Indication: THROMBOLYSIS
     Route: 048
     Dates: start: 20160424, end: 20160505

REACTIONS (1)
  - Drug eruption [Fatal]

NARRATIVE: CASE EVENT DATE: 20160427
